FAERS Safety Report 25401778 (Version 1)
Quarter: 2025Q2

REPORT INFORMATION
  Report Type: Report from Study
  Country: GB (occurrence: GB)
  Receive Date: 20250605
  Receipt Date: 20250605
  Transmission Date: 20250717
  Serious: Yes (Other)
  Sender: EMD SERONO INC
  Company Number: GB-Merck Healthcare KGaA-2025027217

PATIENT
  Sex: Female

DRUGS (4)
  1. MAVENCLAD [Suspect]
     Active Substance: CLADRIBINE
     Indication: Multiple sclerosis
  2. MAVENCLAD [Suspect]
     Active Substance: CLADRIBINE
  3. MAVENCLAD [Suspect]
     Active Substance: CLADRIBINE
  4. MAVENCLAD [Suspect]
     Active Substance: CLADRIBINE

REACTIONS (12)
  - Cerebrovascular accident [Unknown]
  - Hemiparesis [Unknown]
  - Brain injury [Unknown]
  - Mobility decreased [Unknown]
  - Vasculitis [Unknown]
  - Angiopathy [Unknown]
  - Contusion [Unknown]
  - Joint stiffness [Unknown]
  - Arthralgia [Unknown]
  - Neck pain [Unknown]
  - Sinus disorder [Unknown]
  - Nasal obstruction [Unknown]
